FAERS Safety Report 17380676 (Version 1)
Quarter: 2020Q1

REPORT INFORMATION
  Report Type: Spontaneous
  Country: ZA (occurrence: ZA)
  Receive Date: 20200206
  Receipt Date: 20200206
  Transmission Date: 20200409
  Serious: No
  Sender: FDA-Public Use
  Company Number: None

PATIENT
  Age: 54 Year
  Sex: Female
  Weight: 80 kg

DRUGS (3)
  1. FULVIC ACID [Concomitant]
  2. GADAVIST [Suspect]
     Active Substance: GADOBUTROL
     Indication: SCAN WITH CONTRAST
     Dosage: ?          OTHER STRENGTH:DON^T KNOW;QUANTITY:1 PATCH(ES);OTHER FREQUENCY:ONCE;OTHER ROUTE:INJECTED INTO HIP JOINT?
     Dates: start: 20200203, end: 20200203
  3. VENTOLIN BEROTEC [Concomitant]

REACTIONS (5)
  - Somnolence [None]
  - Head discomfort [None]
  - Fatigue [None]
  - Dizziness [None]
  - Nausea [None]

NARRATIVE: CASE EVENT DATE: 20200206
